FAERS Safety Report 13571031 (Version 3)
Quarter: 2017Q4

REPORT INFORMATION
  Report Type: Spontaneous
  Country: US (occurrence: US)
  Receive Date: 20170523
  Receipt Date: 20171005
  Transmission Date: 20180320
  Serious: Yes (Hospitalization)
  Sender: FDA-Public Use
  Company Number: US-ROCHE-1936787

PATIENT
  Sex: Male

DRUGS (2)
  1. ESBRIET [Suspect]
     Active Substance: PIRFENIDONE
     Indication: IDIOPATHIC PULMONARY FIBROSIS
     Route: 048
     Dates: start: 20170701
  2. ESBRIET [Suspect]
     Active Substance: PIRFENIDONE
     Indication: ATRIAL FIBRILLATION
     Route: 048
     Dates: start: 20170407

REACTIONS (8)
  - Hypotension [Recovered/Resolved]
  - Circulatory collapse [Recovered/Resolved]
  - Blood potassium decreased [Recovered/Resolved]
  - Off label use [Unknown]
  - Sunburn [Recovered/Resolved]
  - Oxygen saturation decreased [Recovered/Resolved]
  - Rash [Not Recovered/Not Resolved]
  - Intentional product use issue [Unknown]
